FAERS Safety Report 13158985 (Version 1)
Quarter: 2017Q1

REPORT INFORMATION
  Report Type: Spontaneous
  Country: JP (occurrence: JP)
  Receive Date: 20170127
  Receipt Date: 20170127
  Transmission Date: 20170428
  Serious: Yes (Hospitalization)
  Sender: FDA-Public Use
  Company Number: JP-GLAXOSMITHKLINE-JP2017JPN009031

PATIENT
  Age: 16 Year
  Sex: Male

DRUGS (2)
  1. INAVIR (JAPAN) [Concomitant]
     Indication: INFLUENZA
     Dosage: UNK
     Dates: start: 201612
  2. RELENZA [Suspect]
     Active Substance: ZANAMIVIR
     Indication: INFLUENZA
     Dosage: 10 MG, QD
     Route: 055
     Dates: start: 20170121, end: 20170121

REACTIONS (3)
  - Abnormal behaviour [Recovered/Resolved]
  - Aggression [Recovered/Resolved]
  - Speech disorder [Recovered/Resolved]

NARRATIVE: CASE EVENT DATE: 20170121
